FAERS Safety Report 5946790-8 (Version None)
Quarter: 2008Q4

REPORT INFORMATION
  Report Type: 
  Country: None (occurrence: None)
  Receive Date: 20081110
  Receipt Date: 20081029
  Transmission Date: 20090506
  Serious: Yes (Hospitalization)
  Sender: FDA-Public Use
  Company Number: NL-WYE-H06597908

PATIENT
  Age: 28 Year
  Sex: Female

DRUGS (4)
  1. METHOTREXATE [Suspect]
     Indication: PSORIASIS
     Route: 065
  2. METHOTREXATE [Suspect]
     Indication: ARTHRALGIA
  3. IBUPROFEN TABLETS [Suspect]
     Indication: PSORIASIS
     Route: 065
  4. IBUPROFEN TABLETS [Suspect]
     Indication: ARTHRALGIA

REACTIONS (2)
  - ANEURYSM RUPTURED [None]
  - POLYARTERITIS NODOSA [None]
